FAERS Safety Report 5075666-6 (Version None)
Quarter: 2006Q3

REPORT INFORMATION
  Report Type: 
  Country: None (occurrence: None)
  Receive Date: 20060809
  Receipt Date: 20051103
  Transmission Date: 20061208
  Serious: Yes (Hospitalization, Disabling)
  Sender: FDA-Public Use
  Company Number: US-ROCHE-423642

PATIENT
  Age: 46 Year
  Sex: Male
  Weight: 81.6 kg

DRUGS (6)
  1. ACCUTANE [Suspect]
     Dosage: INDICATION REPORTED AS CYSTIC ACNE AND FOLLICULITIS.
     Route: 048
     Dates: start: 19920915
  2. ACCUTANE [Suspect]
     Dosage: INDICATION REPORTED AS ACNE AND FOLLICULITIS. DOSAGE REGIMEN CHANGED TO 40MG TWICE WEEKLY AFTER THE+
     Route: 048
     Dates: start: 19970926
  3. ACCUTANE [Suspect]
     Dosage: INDICATION REPORTED AS CYSTIC ACNE. DOSAGE REGIMEN CHANGED TO 40MG AFTER ONE MONTH, THEN TO 40MG EV+
     Route: 048
     Dates: start: 20001127
  4. COZAAR [Concomitant]
     Indication: HYPERTENSION
  5. CLARITIN-D [Concomitant]
  6. FIORICET [Concomitant]

REACTIONS (57)
  - ABDOMINAL PAIN LOWER [None]
  - ANAEMIA [None]
  - ANHEDONIA [None]
  - ANXIETY [None]
  - ASTHENIA [None]
  - BONE DENSITY DECREASED [None]
  - CHRONIC FATIGUE SYNDROME [None]
  - COLITIS [None]
  - COLITIS ULCERATIVE [None]
  - CONDITION AGGRAVATED [None]
  - CROHN'S DISEASE [None]
  - CYST [None]
  - CYSTITIS [None]
  - DECREASED APPETITE [None]
  - DEHYDRATION [None]
  - DEPRESSED MOOD [None]
  - DEPRESSION [None]
  - DISTURBANCE IN ATTENTION [None]
  - DIZZINESS [None]
  - ECONOMIC PROBLEM [None]
  - ERECTILE DYSFUNCTION [None]
  - FAILURE TO THRIVE [None]
  - FATIGUE [None]
  - FEELING GUILTY [None]
  - FEELINGS OF WORTHLESSNESS [None]
  - FLATULENCE [None]
  - FLIGHT OF IDEAS [None]
  - GASTROINTESTINAL DISORDER [None]
  - HEADACHE [None]
  - HERPES SIMPLEX [None]
  - HYPERTENSION [None]
  - HYPOPHOSPHATAEMIA [None]
  - INCREASED APPETITE [None]
  - INFLAMMATORY BOWEL DISEASE [None]
  - INJURY [None]
  - INSOMNIA [None]
  - INTERVERTEBRAL DISC DEGENERATION [None]
  - INTESTINAL HAEMORRHAGE [None]
  - IRRITABILITY [None]
  - JOINT EFFUSION [None]
  - MALNUTRITION [None]
  - MEASLES [None]
  - MICTURITION URGENCY [None]
  - NAUSEA [None]
  - OSTEOPENIA [None]
  - OSTEOPOROSIS [None]
  - PAIN [None]
  - PHARYNGITIS [None]
  - PROCTITIS ULCERATIVE [None]
  - RESTLESSNESS [None]
  - SCROTAL CYST [None]
  - SINUS ARRHYTHMIA [None]
  - SINUSITIS [None]
  - STRESS [None]
  - TESTICULAR PAIN [None]
  - URINARY RETENTION [None]
  - WEIGHT DECREASED [None]
